FAERS Safety Report 21081221 (Version 5)
Quarter: 2023Q2

REPORT INFORMATION
  Report Type: Report from Study
  Country: CA (occurrence: None)
  Receive Date: 20220714
  Receipt Date: 20230412
  Transmission Date: 20230722
  Serious: Yes (Hospitalization, Other)
  Sender: FDA-Public Use
  Company Number: CA-ROCHE-3135919

PATIENT
  Age: 64 Year
  Sex: Female

DRUGS (14)
  1. VEMURAFENIB [Suspect]
     Active Substance: VEMURAFENIB
     Indication: Ovarian cancer
     Route: 048
     Dates: start: 20220622, end: 20220627
  2. VEMURAFENIB [Suspect]
     Active Substance: VEMURAFENIB
     Route: 048
     Dates: start: 20220617, end: 20220720
  3. COBIMETINIB [Suspect]
     Active Substance: COBIMETINIB
     Indication: Ovarian cancer
     Route: 048
     Dates: start: 20220622, end: 20220627
  4. COBIMETINIB [Suspect]
     Active Substance: COBIMETINIB
     Route: 048
     Dates: start: 20220617, end: 20220720
  5. AMITRIPTYLINE [Concomitant]
     Active Substance: AMITRIPTYLINE
     Dates: start: 2019
  6. CELECOXIB [Concomitant]
     Active Substance: CELECOXIB
     Dates: start: 20220525
  7. CITALOPRAM [Concomitant]
     Active Substance: CITALOPRAM HYDROBROMIDE
     Dates: start: 202111
  8. PANTOPRAZOLE [Concomitant]
     Active Substance: PANTOPRAZOLE
     Dates: start: 2012
  9. QUETIAPINE [Concomitant]
     Active Substance: QUETIAPINE
     Dates: start: 2017
  10. LOPERAMIDE [Concomitant]
     Active Substance: LOPERAMIDE
     Dates: start: 2019
  11. DICYCLOMINE [Concomitant]
     Active Substance: DICYCLOMINE HYDROCHLORIDE
     Dates: start: 2019
  12. RIZATRIPTAN [Concomitant]
     Active Substance: RIZATRIPTAN
     Dates: start: 1992
  13. GRAVOL [Concomitant]
     Active Substance: DIMENHYDRINATE
     Dates: start: 20220629
  14. GLYCERIN [Concomitant]
     Active Substance: GLYCERIN
     Dates: start: 20220629

REACTIONS (4)
  - Visual impairment [Recovered/Resolved]
  - Rash maculo-papular [Not Recovered/Not Resolved]
  - Electrocardiogram QT prolonged [Unknown]
  - Photosensitivity reaction [Unknown]

NARRATIVE: CASE EVENT DATE: 20220628
